FAERS Safety Report 10467054 (Version 3)
Quarter: 2014Q4

REPORT INFORMATION
  Report Type: Report from Study
  Country: US (occurrence: US)
  Receive Date: 20140922
  Receipt Date: 20141030
  Transmission Date: 20150528
  Serious: Yes (Other)
  Sender: FDA-Public Use
  Company Number: US-SA-2014SA128408

PATIENT
  Age: 73 Year
  Sex: Female

DRUGS (12)
  1. LASIX [Concomitant]
     Active Substance: FUROSEMIDE
  2. LEVOTHYROXINE [Concomitant]
     Active Substance: LEVOTHYROXINE
  3. PREVACID [Concomitant]
     Active Substance: LANSOPRAZOLE
     Dosage: 12 MG OTC 1/2 DAY
  4. SOLOSTAR [Concomitant]
     Active Substance: DEVICE
     Indication: TYPE 2 DIABETES MELLITUS
  5. ZOLOFT [Concomitant]
     Active Substance: SERTRALINE HYDROCHLORIDE
  6. AMARYL [Concomitant]
     Active Substance: GLIMEPIRIDE
  7. LANTUS SOLOSTAR [Suspect]
     Active Substance: INSULIN GLARGINE
     Indication: TYPE 2 DIABETES MELLITUS
     Dosage: START DATE: 4 TO 5 YEARS AGO DOSE:30 UNIT(S)
     Route: 065
     Dates: end: 20140922
  8. LISINOPRIL. [Concomitant]
     Active Substance: LISINOPRIL
  9. LOPRESSOR [Concomitant]
     Active Substance: METOPROLOL TARTRATE
     Dosage: DOSE: 50 MG 1/2 2 DAY
  10. MULTIVITAMIN AND MINERAL SUPPLEMENT [Concomitant]
     Active Substance: MINERALS\VITAMINS
  11. NORVASC [Concomitant]
     Active Substance: AMLODIPINE BESYLATE
  12. ASPIRIN. [Concomitant]
     Active Substance: ASPIRIN
     Dosage: 1 DOSE (HIGH DOSE)

REACTIONS (2)
  - Off label use [Unknown]
  - Systemic lupus erythematosus [Not Recovered/Not Resolved]
